FAERS Safety Report 5537820-6 (Version None)
Quarter: 2007Q4

REPORT INFORMATION
  Report Type: 
  Country: None (occurrence: None)
  Receive Date: 20071207
  Receipt Date: 20071128
  Transmission Date: 20080405
  Serious: Yes (Other)
  Sender: FDA-Public Use
  Company Number: US-PFIZER INC-2007100146

PATIENT
  Sex: Male
  Weight: 79.4 kg

DRUGS (1)
  1. XALATAN [Suspect]
     Indication: GLAUCOMA
     Route: 047

REACTIONS (3)
  - CATARACT OPERATION [None]
  - DIABETES MELLITUS [None]
  - VISION BLURRED [None]
